FAERS Safety Report 9636082 (Version 1)
Quarter: 2013Q4

REPORT INFORMATION
  Report Type: Spontaneous
  Country: TR (occurrence: TR)
  Receive Date: 20131021
  Receipt Date: 20131021
  Transmission Date: 20140711
  Serious: Yes (Hospitalization)
  Sender: FDA-Public Use
  Company Number: TR-MYLANLABS-2013S1022839

PATIENT
  Age: 3 Year
  Sex: Male

DRUGS (4)
  1. IBUPROFEN [Suspect]
     Dosage: 100MG
     Route: 065
  2. KETOPROFEN [Suspect]
     Dosage: 5MG
     Route: 065
  3. PARACETAMOL [Suspect]
     Dosage: 250MG (12.5 MG/KG)
     Route: 048
  4. DIPYRONE [Suspect]
     Indication: PYREXIA
     Route: 065

REACTIONS (1)
  - Angioedema [Recovered/Resolved]
